FAERS Safety Report 4936160-3 (Version None)
Quarter: 2006Q1

REPORT INFORMATION
  Report Type: 
  Country: None (occurrence: None)
  Receive Date: 20060307
  Receipt Date: 20051118
  Transmission Date: 20060701
  Serious: No
  Sender: FDA-Public Use
  Company Number: US-GLAXOSMITHKLINE-A0582892A

PATIENT
  Age: 46 Year
  Sex: Female

DRUGS (8)
  1. REQUIP [Suspect]
     Indication: RESTLESS LEGS SYNDROME
     Dosage: 1MG PER DAY
     Route: 048
     Dates: start: 20050901, end: 20051117
  2. MOBIC [Concomitant]
  3. NEURONTIN [Concomitant]
  4. ZANTAC [Concomitant]
  5. NEXIUM [Concomitant]
  6. VITAMIN B-12 [Concomitant]
  7. MUCINEX [Concomitant]
  8. TRAZODONE [Concomitant]

REACTIONS (6)
  - COLD SWEAT [None]
  - DYSPNOEA [None]
  - HYPERHIDROSIS [None]
  - NAUSEA [None]
  - THROAT TIGHTNESS [None]
  - VOMITING [None]
